FAERS Safety Report 7809703-X (Version None)
Quarter: 2011Q4

REPORT INFORMATION
  Report Type: 
  Country: None (occurrence: None)
  Receive Date: 20111012
  Receipt Date: 20111003
  Transmission Date: 20120403
  Serious: Yes (Other)
  Sender: FDA-Public Use
  Company Number: GB-GLAXOSMITHKLINE-B0637936A

PATIENT
  Sex: Male

DRUGS (8)
  1. PROCHLORPERAZINE [Suspect]
     Indication: VERTIGO
     Route: 065
  2. OMEPRAZOLE [Suspect]
     Indication: PRODUCT USED FOR UNKNOWN INDICATION
     Route: 065
  3. BETNOVATE [Suspect]
     Indication: PRURITUS
     Route: 065
     Dates: start: 20070101
  4. PHENERGAN HCL [Suspect]
     Indication: PRODUCT USED FOR UNKNOWN INDICATION
     Route: 065
  5. LIPITOR [Suspect]
     Indication: PRODUCT USED FOR UNKNOWN INDICATION
     Route: 065
  6. PROCHLORPERAZINE [Suspect]
     Indication: VERTIGO
     Route: 065
     Dates: start: 20070101
  7. FUCIBET [Suspect]
     Indication: PRODUCT USED FOR UNKNOWN INDICATION
     Route: 065
     Dates: start: 20091230
  8. TETANUS INJECTION [Suspect]
     Indication: PRODUCT USED FOR UNKNOWN INDICATION
     Route: 065

REACTIONS (13)
  - CEREBROVASCULAR ACCIDENT [None]
  - CONDITION AGGRAVATED [None]
  - BLOOD CHOLESTEROL INCREASED [None]
  - RASH PRURITIC [None]
  - CONSTIPATION [None]
  - PUSTULAR PSORIASIS [None]
  - SWELLING [None]
  - DRUG INEFFECTIVE [None]
  - RASH PAPULAR [None]
  - HYPERSENSITIVITY [None]
  - RASH PUSTULAR [None]
  - INSOMNIA [None]
  - PRURITUS [None]
